FAERS Safety Report 23709825 (Version 3)
Quarter: 2024Q2

REPORT INFORMATION
  Report Type: Spontaneous
  Country: FR (occurrence: NC)
  Receive Date: 20240405
  Receipt Date: 20240425
  Transmission Date: 20240716
  Serious: Yes (Death, Hospitalization)
  Sender: FDA-Public Use
  Company Number: None

PATIENT
  Age: 77 Year

DRUGS (1)
  1. TECVAYLI [Suspect]
     Active Substance: TECLISTAMAB-CQYV
     Indication: Plasma cell myeloma
     Route: 058
     Dates: start: 20230620, end: 20230808

REACTIONS (2)
  - Bladder neoplasm [Fatal]
  - Klebsiella sepsis [Unknown]

NARRATIVE: CASE EVENT DATE: 20230801
